FAERS Safety Report 10251853 (Version 2)
Quarter: 2014Q3

REPORT INFORMATION
  Report Type: Report from Study
  Country: US (occurrence: US)
  Receive Date: 20140623
  Receipt Date: 20140711
  Transmission Date: 20150326
  Serious: Yes (Hospitalization)
  Sender: FDA-Public Use
  Company Number: US-BRISTOL-MYERS SQUIBB COMPANY-21017819

PATIENT
  Age: 48 Year
  Sex: Male
  Weight: 131.2 kg

DRUGS (2)
  1. IPILIMUMAB [Suspect]
     Active Substance: IPILIMUMAB
     Indication: GASTROINTESTINAL STROMAL TUMOUR
     Dosage: LAST DOSE:13MAY14?1400 MG,TOTAL DOSE
     Route: 042
     Dates: start: 20140306
  2. DASATINIB [Suspect]
     Active Substance: DASATINIB
     Indication: GASTROINTESTINAL STROMAL TUMOUR
     Dosage: LAST DOSE:26MAY14?DOSE:910MG,TOTAL
     Route: 048
     Dates: start: 20140306

REACTIONS (4)
  - Malaise [Recovered/Resolved]
  - Proctalgia [Recovered/Resolved]
  - Diarrhoea [Recovered/Resolved]
  - Perirectal abscess [Recovered/Resolved]

NARRATIVE: CASE EVENT DATE: 20140605
